FAERS Safety Report 10583362 (Version 2)
Quarter: 2015Q1

REPORT INFORMATION
  Report Type: Spontaneous
  Country: JP (occurrence: None)
  Receive Date: 20141112
  Receipt Date: 20150129
  Transmission Date: 20150720
  Serious: Yes (Death, Life-Threatening, Other)
  Sender: FDA-Public Use
  Company Number: 2014MPI01099

PATIENT
  Age: 72 Year
  Sex: Male
  Weight: 47.7 kg

DRUGS (4)
  1. PREDNISOLONE. [Concomitant]
     Active Substance: PREDNISOLONE
  2. FUNGUARD (MICAFUNGIN SODIUM) [Concomitant]
  3. ADCETRIS [Suspect]
     Active Substance: BRENTUXIMAB VEDOTIN
     Indication: ANAPLASTIC LARGE-CELL LYMPHOMA
     Route: 041
     Dates: start: 20140808, end: 20140808
  4. MAXIPIME (CEFEPIME HYDROCHLORIDE) [Concomitant]

REACTIONS (6)
  - Anaplastic large-cell lymphoma [None]
  - Disseminated intravascular coagulation [None]
  - Condition aggravated [None]
  - Blood uric acid increased [None]
  - Pneumonitis [None]
  - Hypercalcaemia [None]

NARRATIVE: CASE EVENT DATE: 20140809
